FAERS Safety Report 15012695 (Version 5)
Quarter: 2018Q3

REPORT INFORMATION
  Report Type: Report from Study
  Country: GB (occurrence: GB)
  Receive Date: 20180614
  Receipt Date: 20180903
  Transmission Date: 20181010
  Serious: Yes (Hospitalization)
  Sender: FDA-Public Use
  Company Number: GB-TEVA-2017-GB-833663

PATIENT
  Age: 82 Year
  Sex: Female
  Weight: 55 kg

DRUGS (51)
  1. DEXAMETHASONE. [Suspect]
     Active Substance: DEXAMETHASONE
     Route: 048
     Dates: start: 20170217, end: 20170228
  2. BORTEZOMIB. [Suspect]
     Active Substance: BORTEZOMIB
     Dosage: DAYS 1, 4, 8 AND 11 OF EACH 21?DAY CYCLE FOR CYCLES 1?8
     Route: 058
     Dates: start: 20170106, end: 20170124
  3. VELCADE [Suspect]
     Active Substance: BORTEZOMIB
     Dosage: DAYS 1, 8, 15 AND 22 OF EACH 35?DAY CYCLE FOR CYCLES 9 AND BEYOND
     Route: 058
     Dates: start: 20170630
  4. GABAPENTIN. [Concomitant]
     Active Substance: GABAPENTIN
     Indication: BURSITIS
     Dosage: 900 MILLIGRAM DAILY;
     Route: 048
     Dates: start: 20161117
  5. PARACETAMOL [Concomitant]
     Active Substance: ACETAMINOPHEN
     Indication: HEADACHE
     Dosage: 500 MILLIGRAM DAILY;
     Route: 048
     Dates: start: 20170729
  6. VENETOCLAX. [Suspect]
     Active Substance: VENETOCLAX
     Route: 048
     Dates: start: 20170630, end: 20171026
  7. LANSOPRAZOLE. [Concomitant]
     Active Substance: LANSOPRAZOLE
     Indication: PRODUCT USED FOR UNKNOWN INDICATION
  8. DEXAMETHASONE. [Suspect]
     Active Substance: DEXAMETHASONE
     Dosage: 8 MG ON DAYS 1, 2, 4, 5, 8, 9, 11 AND 12 OF EACH 21?DAY CYCLE
     Route: 048
     Dates: start: 20170512, end: 20170613
  9. BORTEZOMIB. [Suspect]
     Active Substance: BORTEZOMIB
     Dosage: DAYS 1, 8, 15 AND 22 OF EACH 35?DAY CYCLE FOR CYCLES 9 AND BEYOND
     Route: 058
  10. VENETOCLAX. [Suspect]
     Active Substance: VENETOCLAX
     Indication: PLASMA CELL MYELOMA
     Route: 048
     Dates: start: 20170211, end: 20170309
  11. ERYTHROPOIETIN [Concomitant]
     Active Substance: ERYTHROPOIETIN
     Indication: ANAEMIA
     Dosage: 12000 UNIT, QW
     Route: 058
     Dates: start: 20161118
  12. ACETYLSALICYLIC ACID [Concomitant]
     Active Substance: ASPIRIN
     Indication: THROMBOSIS PROPHYLAXIS
     Dosage: 75 MILLIGRAM DAILY;
     Route: 048
     Dates: start: 20170529
  13. OSELTAMIVIR PHOSPHATE. [Concomitant]
     Active Substance: OSELTAMIVIR PHOSPHATE
     Indication: INFLUENZA
     Dosage: 150 MILLIGRAM DAILY; 75 MG, BID
     Route: 048
     Dates: start: 20170330
  14. FUROSEMIDE SODIUM [Concomitant]
     Active Substance: FUROSEMIDE SODIUM
     Indication: PRODUCT USED FOR UNKNOWN INDICATION
     Dosage: 40 MILLIGRAM DAILY; 40 MG, QD
     Route: 048
     Dates: start: 20170208
  15. PANADEINE(ACETAMINOPHEN W/CODEINE PHOSPHATE)? [Concomitant]
     Indication: HEADACHE
     Route: 048
     Dates: start: 20170729
  16. DEXAMETHASONE. [Suspect]
     Active Substance: DEXAMETHASONE
     Indication: PLASMA CELL MYELOMA
     Dosage: 12 MG ON DAYS 1, 2, 4, 5, 8, 9, 11 AND 12 OF EACH 21?DAY CYCLE
     Route: 048
     Dates: start: 20170217, end: 20170228
  17. BORTEZOMIB. [Suspect]
     Active Substance: BORTEZOMIB
     Route: 058
     Dates: start: 20170101, end: 20170124
  18. VELCADE [Suspect]
     Active Substance: BORTEZOMIB
     Indication: PLASMA CELL MYELOMA
     Dosage: LYOPHILIZED POWDER, DAYS 1, 4, 8 AND 11 OF EACH 21?DAY CYCLE FOR CYCLES 1?8
     Route: 058
     Dates: start: 20170106, end: 20170124
  19. AMLODIPINE BESILATE [Concomitant]
     Active Substance: AMLODIPINE BESYLATE
     Indication: PRODUCT USED FOR UNKNOWN INDICATION
  20. DOMPERIDONE MALEATE [Concomitant]
     Active Substance: DOMPERIDONE MALEATE
     Indication: PROPHYLAXIS OF NAUSEA AND VOMITING
     Dosage: 30 MILLIGRAM DAILY; 10 MG, TID
     Route: 048
     Dates: start: 20170109, end: 20170223
  21. ACETYLSALICYLIC ACID [Concomitant]
     Active Substance: ASPIRIN
     Indication: PROPHYLAXIS
  22. DOXAZOSIN MESYLATE. [Concomitant]
     Active Substance: DOXAZOSIN MESYLATE
     Indication: PRODUCT USED FOR UNKNOWN INDICATION
  23. GABAPENTIN. [Concomitant]
     Active Substance: GABAPENTIN
     Indication: PRODUCT USED FOR UNKNOWN INDICATION
  24. OXYBUTYNIN. [Concomitant]
     Active Substance: OXYBUTYNIN CHLORIDE
     Indication: INCONTINENCE
     Dosage: 5 MILLIGRAM DAILY;
     Route: 048
     Dates: start: 20160602
  25. PAMIDRONATE [Concomitant]
     Active Substance: PAMIDRONATE DISODIUM
     Indication: BONE DISORDER
     Route: 042
     Dates: start: 20170728
  26. ACETAMINOPHEN. [Concomitant]
     Active Substance: ACETAMINOPHEN
     Indication: HEADACHE
     Dosage: 500 MILLIGRAM DAILY;
     Route: 048
     Dates: start: 20170729
  27. DEXAMETHASONE. [Suspect]
     Active Substance: DEXAMETHASONE
     Dosage: 8 MG ON DAYS 1, 2, 8, 9, 15, 16, 22 AND 23 OF EACH 35?DAY CYCLE
     Route: 048
     Dates: start: 20170630
  28. BORTEZOMIB. [Suspect]
     Active Substance: BORTEZOMIB
     Route: 065
     Dates: start: 20170630
  29. VELCADE [Suspect]
     Active Substance: BORTEZOMIB
     Dosage: DAYS 1, 4, 8 AND 11 OF EACH 21?DAY CYCLE FOR CYCLES 1?8
     Route: 058
     Dates: start: 20170331, end: 20170607
  30. VENETOCLAX. [Suspect]
     Active Substance: VENETOCLAX
     Route: 048
     Dates: start: 20170106, end: 20170124
  31. AMLODIPINE BESILATE [Concomitant]
     Active Substance: AMLODIPINE BESYLATE
     Indication: HYPERTENSION
     Dosage: 10 MILLIGRAM DAILY; 10 MG, QD
     Route: 048
     Dates: start: 20161102
  32. LEKOVIT CA [Concomitant]
     Active Substance: CALCIUM CARBONATE\CHOLECALCIFEROL
     Indication: PROPHYLAXIS
     Dosage: 1 DOSAGE FORMS DAILY;
     Route: 048
     Dates: start: 20101202
  33. DOXAZOSIN MESYLATE. [Concomitant]
     Active Substance: DOXAZOSIN MESYLATE
     Indication: HYPERTENSION
     Dosage: 8 MILLIGRAM DAILY;
     Route: 048
     Dates: start: 20080211
  34. DEXAMETHASONE. [Suspect]
     Active Substance: DEXAMETHASONE
     Dosage: 20 MG ON DAYS 1, 2, 4, 5, 8, 9, 11 AND 12 OF EACH 21?DAY CYCLE
     Route: 048
     Dates: start: 20170106, end: 20170117
  35. BORTEZOMIB. [Suspect]
     Active Substance: BORTEZOMIB
     Indication: PLASMA CELL MYELOMA
     Route: 058
     Dates: start: 20170331, end: 20170607
  36. VENETOCLAX. [Suspect]
     Active Substance: VENETOCLAX
     Route: 048
     Dates: start: 20170331, end: 20170607
  37. LOPERAMIDE HYDROCHLORIDE. [Concomitant]
     Active Substance: LOPERAMIDE HYDROCHLORIDE
     Indication: DIARRHOEA
     Dosage: 2 MILLIGRAM DAILY; DOSE: 2 MG, PRN
     Route: 048
     Dates: start: 20170512
  38. CO?CODAMOL? [Concomitant]
     Indication: HEADACHE
     Dosage: 32 MILLIGRAM DAILY; 8 MG, QID
     Route: 048
     Dates: start: 20170729
  39. DOMPERIDONE MALEATE [Concomitant]
     Active Substance: DOMPERIDONE MALEATE
     Indication: NAUSEA
     Dosage: 10 MILLIGRAM DAILY;
     Route: 048
     Dates: start: 20170224
  40. CALCICHEW [Concomitant]
     Active Substance: CALCIUM CARBONATE
     Indication: PRODUCT USED FOR UNKNOWN INDICATION
     Route: 065
     Dates: start: 20101202
  41. VELCADE [Suspect]
     Active Substance: BORTEZOMIB
     Dosage: DAYS 1, 4, 8 AND 11 OF EACH 21?DAY CYCLE FOR CYCLES 1?8
     Route: 058
     Dates: start: 20170211, end: 20170309
  42. VENETOCLAX. [Suspect]
     Active Substance: VENETOCLAX
     Route: 048
     Dates: start: 20171110
  43. POTASSIUM [Concomitant]
     Active Substance: POTASSIUM
     Indication: BLOOD POTASSIUM DECREASED
     Dosage: UNK
     Route: 048
     Dates: start: 20170207
  44. LANSOPRAZOLE. [Concomitant]
     Active Substance: LANSOPRAZOLE
     Indication: HIATUS HERNIA
     Dosage: 60 MILLIGRAM DAILY; 30 MG, BID
     Route: 048
     Dates: start: 20130815
  45. ACETYLSALICYLIC ACID [Concomitant]
     Active Substance: ASPIRIN
     Indication: PRODUCT USED FOR UNKNOWN INDICATION
  46. OXYBUTYNIN. [Concomitant]
     Active Substance: OXYBUTYNIN CHLORIDE
     Indication: PRODUCT USED FOR UNKNOWN INDICATION
  47. PANADEINE(ACETAMINOPHEN W/CODEINE PHOSPHATE)? [Concomitant]
     Dosage: 8 MILLIGRAM DAILY; 8 MG, QID
     Route: 048
     Dates: start: 20170729
  48. DEXAMETHASONE. [Suspect]
     Active Substance: DEXAMETHASONE
     Indication: PRODUCT USED FOR UNKNOWN INDICATION
     Dosage: 12 MG ON DAYS 1, 2, 4, 5, 8, 9, 11 AND 12 OF EACH 21?DAY CYCLE
     Route: 048
     Dates: start: 20170407, end: 20170429
  49. BORTEZOMIB. [Suspect]
     Active Substance: BORTEZOMIB
     Dosage: DAYS 1, 4, 8 AND 11 OF EACH 21?DAY CYCLE FOR CYCLES 1?8
     Route: 058
     Dates: start: 20170211, end: 20170309
  50. ERYTHROPOIETIN [Concomitant]
     Active Substance: ERYTHROPOIETIN
     Indication: PRODUCT USED FOR UNKNOWN INDICATION
     Dosage: 30000 UNIT, QW
     Route: 058
     Dates: start: 20160901, end: 20161117
  51. FUROSEMIDE SODIUM [Concomitant]
     Active Substance: FUROSEMIDE SODIUM
     Indication: OEDEMA PERIPHERAL
     Dosage: 80 MILLIGRAM DAILY; 40 MG, BID
     Route: 048
     Dates: start: 201702, end: 20170207

REACTIONS (4)
  - Infection [Not Recovered/Not Resolved]
  - Lower respiratory tract infection [Recovered/Resolved]
  - Lung infection [Recovered/Resolved]
  - Infection [Not Recovered/Not Resolved]

NARRATIVE: CASE EVENT DATE: 20170202
